FAERS Safety Report 11341555 (Version 1)
Quarter: 2015Q3

REPORT INFORMATION
  Report Type: Spontaneous
  Country: US (occurrence: None)
  Receive Date: 20150629
  Receipt Date: 20150629
  Transmission Date: 20151125
  Serious: No
  Sender: FDA-Public Use
  Company Number: A-NJ2015-111437

PATIENT
  Age: 87 Year
  Sex: Female

DRUGS (8)
  1. SPIRONOLACTONE AND HYDROCHLOROTHIAZIDE (HYDROCHLOROTHIAZIDE, SPIRONOLACTONE) [Concomitant]
  2. LOSARTAN (LOSARTAN) [Concomitant]
     Active Substance: LOSARTAN
  3. DOXYCYCLINE. [Concomitant]
     Active Substance: DOXYCYCLINE
  4. OPSUMIT [Suspect]
     Active Substance: MACITENTAN
     Indication: PULMONARY ARTERIAL HYPERTENSION
     Route: 048
     Dates: start: 20141117
  5. DILTIAZEM CD (DILATIAZEM HYDROCHLORIDE) [Concomitant]
  6. PAROXETINE (PAROXETINE) [Concomitant]
     Active Substance: PAROXETINE HYDROCHLORIDE
  7. SOTALOL (SOTALOL) [Concomitant]
     Active Substance: SOTALOL
  8. MOMETASONE (MOMETASONE) [Concomitant]

REACTIONS (1)
  - Drug ineffective [None]
